FAERS Safety Report 8812578 (Version 1)
Quarter: 2012Q4

REPORT INFORMATION
  Report Type: Report from Study
  Country: US (occurrence: US)
  Receive Date: 20120927
  Receipt Date: 20120927
  Transmission Date: 20130627
  Serious: Yes (Other)
  Sender: FDA-Public Use
  Company Number: US-JNJFOC-20120910659

PATIENT
  Age: 4 None
  Sex: Male

DRUGS (2)
  1. REMICADE [Suspect]
     Indication: CROHN^S DISEASE
     Route: 042
     Dates: start: 2011, end: 2012
  2. REMICADE [Suspect]
     Indication: CROHN^S DISEASE
     Route: 042
     Dates: start: 2012, end: 2012

REACTIONS (9)
  - Tachycardia [Unknown]
  - Hypotension [Unknown]
  - Confusional state [Unknown]
  - Haematochezia [Unknown]
  - Muscle spasms [Unknown]
  - Diarrhoea [Unknown]
  - Arthralgia [Unknown]
  - Drug effect incomplete [Unknown]
  - Infusion related reaction [Unknown]
